FAERS Safety Report 5216088-4 (Version None)
Quarter: 2007Q1

REPORT INFORMATION
  Report Type: 
  Country: None (occurrence: None)
  Receive Date: 20070118
  Receipt Date: 20070109
  Transmission Date: 20070707
  Serious: Yes (Hospitalization)
  Sender: FDA-Public Use
  Company Number: 2007BI000592

PATIENT
  Age: 56 Year
  Sex: Female
  Weight: 77.5651 kg

DRUGS (5)
  1. AVONEX [Suspect]
     Indication: MULTIPLE SCLEROSIS
     Dosage: 30 UG;QW;IM
     Route: 030
     Dates: start: 20000101, end: 20030101
  2. AVONEX [Suspect]
     Indication: MULTIPLE SCLEROSIS
     Dosage: 30 UG;QW;IM
     Route: 030
     Dates: start: 20030101
  3. BACLOFEN [Concomitant]
  4. NEURONTIN [Concomitant]
  5. AMANTADINE HCL [Concomitant]

REACTIONS (9)
  - ARTHRITIS [None]
  - BLOOD PRESSURE DECREASED [None]
  - DEPRESSION [None]
  - FALL [None]
  - GAIT DISTURBANCE [None]
  - HYPERTENSION [None]
  - RESPIRATORY ARREST [None]
  - SPINAL DISORDER [None]
  - VOMITING [None]
